FAERS Safety Report 5510569-1 (Version None)
Quarter: 2007Q4

REPORT INFORMATION
  Report Type: 
  Country: None (occurrence: None)
  Receive Date: 20071108
  Receipt Date: 20071024
  Transmission Date: 20080405
  Serious: Yes (Life-Threatening)
  Sender: FDA-Public Use
  Company Number: NL-GENENTECH-250771

PATIENT
  Sex: Female
  Weight: 67.574 kg

DRUGS (14)
  1. BEVACIZUMAB [Suspect]
     Indication: ACUTE MYELOID LEUKAEMIA
     Dosage: 340 MG, UNK
     Route: 042
     Dates: start: 20071012, end: 20071012
  2. CYTARABINE [Suspect]
     Indication: ACUTE MYELOID LEUKAEMIA
     Dosage: 350 MG, UNK
     Route: 042
     Dates: start: 20071012, end: 20071018
  3. DAUNOMYCIN [Suspect]
     Indication: ACUTE MYELOID LEUKAEMIA
     Dosage: 78 MG, UNK
     Route: 042
     Dates: start: 20071012, end: 20071014
  4. METOPROLOL TARTRATE [Concomitant]
     Indication: DRUG USE FOR UNKNOWN INDICATION
  5. NORVASC [Concomitant]
     Indication: DRUG USE FOR UNKNOWN INDICATION
  6. ENALAPRIL MALEATE [Concomitant]
     Indication: DRUG USE FOR UNKNOWN INDICATION
  7. PRIMPERAN INJ [Concomitant]
     Indication: DRUG USE FOR UNKNOWN INDICATION
     Dates: start: 20071012
  8. ONDANSETRON [Concomitant]
     Indication: DRUG USE FOR UNKNOWN INDICATION
     Dates: start: 20071012, end: 20071024
  9. DIFLUCAN [Concomitant]
     Indication: DRUG USE FOR UNKNOWN INDICATION
     Dates: start: 20071015
  10. PENICILLIN G [Concomitant]
     Indication: DRUG USE FOR UNKNOWN INDICATION
     Dosage: UNK, UNK
     Dates: start: 20071019
  11. CIPROFLOXACIN [Concomitant]
     Indication: DRUG USE FOR UNKNOWN INDICATION
     Dates: start: 20071022
  12. INSULIN [Concomitant]
     Indication: DRUG USE FOR UNKNOWN INDICATION
  13. GLIMEPIRIDE [Concomitant]
     Indication: DRUG USE FOR UNKNOWN INDICATION
     Dosage: UNK, UNK
     Dates: start: 20071023
  14. CONCOMITANT DRUG [Concomitant]
     Indication: DRUG USE FOR UNKNOWN INDICATION
     Dates: start: 20071015, end: 20071024

REACTIONS (1)
  - VENTRICULAR FIBRILLATION [None]
